FAERS Safety Report 7391476-9 (Version None)
Quarter: 2011Q2

REPORT INFORMATION
  Report Type: 
  Country: None (occurrence: None)
  Receive Date: 20110404
  Receipt Date: 20101018
  Transmission Date: 20111010
  Serious: Yes (Hospitalization, Other)
  Sender: FDA-Public Use
  Company Number: US-BAYER-201031333NA

PATIENT
  Sex: Female
  Weight: 61.224 kg

DRUGS (6)
  1. PRILOSEC [Concomitant]
  2. YAZ [Suspect]
     Indication: MENORRHAGIA
     Dosage: UNK
     Route: 048
     Dates: start: 20070520, end: 20070714
  3. YASMIN [Suspect]
     Indication: MENORRHAGIA
     Dosage: UNK
     Route: 048
     Dates: start: 20070520, end: 20070714
  4. ULTRACET [Concomitant]
  5. ZANTAC [Concomitant]
  6. MEDROXYPROGESTERONE [Concomitant]
     Dosage: 2.5 MG, UNK

REACTIONS (7)
  - DEEP VEIN THROMBOSIS [None]
  - PAIN IN EXTREMITY [None]
  - UNEVALUABLE EVENT [None]
  - INJURY [None]
  - VEIN DISORDER [None]
  - SENSATION OF HEAVINESS [None]
  - OEDEMA PERIPHERAL [None]
